FAERS Safety Report 15644440 (Version 1)
Quarter: 2018Q4

REPORT INFORMATION
  Report Type: Spontaneous
  Country: US (occurrence: US)
  Receive Date: 20181121
  Receipt Date: 20181121
  Transmission Date: 20190205
  Serious: No
  Sender: FDA-Public Use
  Company Number: US-TAKEDA-2018TUS032803

PATIENT
  Age: 60 Year
  Sex: Female
  Weight: 115.65 kg

DRUGS (3)
  1. DEXILANT [Suspect]
     Active Substance: DEXLANSOPRAZOLE
     Indication: GASTROOESOPHAGEAL REFLUX DISEASE
     Dosage: 60 MG, QD
     Route: 048
     Dates: start: 2018, end: 20181111
  2. PREDNISONE. [Concomitant]
     Active Substance: PREDNISONE
     Indication: TINNITUS
     Dosage: UNK
     Route: 048
     Dates: start: 20181102, end: 20181112
  3. SYNTHROID [Concomitant]
     Active Substance: LEVOTHYROXINE SODIUM
     Indication: HYPOTHYROIDISM
     Dosage: 175 UG, QD
     Route: 048

REACTIONS (4)
  - Incorrect product administration duration [Unknown]
  - Tinnitus [Not Recovered/Not Resolved]
  - Tremor [Recovered/Resolved]
  - Abdominal discomfort [Recovered/Resolved]

NARRATIVE: CASE EVENT DATE: 201810
